FAERS Safety Report 5201768-7 (Version None)
Quarter: 2007Q1

REPORT INFORMATION
  Report Type: 
  Country: None (occurrence: None)
  Receive Date: 20070104
  Receipt Date: 20061219
  Transmission Date: 20070707
  Serious: Yes (Death, Hospitalization)
  Sender: FDA-Public Use
  Company Number: A-CH2006-13675

PATIENT
  Age: 62 Year
  Sex: Male
  Weight: 85 kg

DRUGS (12)
  1. TRACLEER [Suspect]
     Indication: PULMONARY HYPERTENSION
     Dosage: 125 MG, BID; ORAL, 6.25 MG, BID, ORAL, ORAL
     Route: 048
     Dates: start: 20060222, end: 20061117
  2. TRACLEER [Suspect]
     Indication: PULMONARY HYPERTENSION
     Dosage: 125 MG, BID; ORAL, 6.25 MG, BID, ORAL, ORAL
     Route: 048
     Dates: start: 20061118, end: 20061120
  3. TRACLEER [Suspect]
     Indication: PULMONARY HYPERTENSION
     Dosage: 125 MG, BID; ORAL, 6.25 MG, BID, ORAL, ORAL
     Route: 048
     Dates: start: 20061101
  4. ENALAPRIL MALEATE [Suspect]
     Dosage: 5 MG, OD,
     Dates: start: 20060620, end: 20061120
  5. FUROSEMIDE [Suspect]
     Dosage: 120 MG, OD,
     Dates: start: 20060201
  6. SPIRONOLACTONE [Suspect]
     Dosage: 100 MG, OD,
     Dates: start: 20060201, end: 20061120
  7. ACENOCOUMAROL (ACENOCOUMAROL) [Suspect]
     Dates: start: 20060201, end: 20061120
  8. ALLOPURINOL [Suspect]
     Dates: end: 20061120
  9. METFORMIN HCL [Suspect]
     Dosage: 1700 MG, OD,
     Dates: start: 20060201, end: 20061120
  10. SIMVASTATIN [Suspect]
     Dosage: 40 MG, OD,
     Dates: end: 20061120
  11. DIGOXIN [Suspect]
     Dosage: 0.25 MG, OD,
     Dates: start: 20060201
  12. FOLIC ACID [Suspect]
     Dates: end: 20061120

REACTIONS (12)
  - ABDOMINAL PAIN UPPER [None]
  - BLOOD AMYLASE INCREASED [None]
  - CHOLELITHIASIS [None]
  - HAEMODYNAMIC INSTABILITY [None]
  - NO THERAPEUTIC RESPONSE [None]
  - PANCREATITIS HAEMORRHAGIC [None]
  - PANCREATITIS NECROTISING [None]
  - PERITONITIS BACTERIAL [None]
  - RENAL FAILURE [None]
  - RESPIRATORY FAILURE [None]
  - SEPTIC SHOCK [None]
  - URINE OUTPUT DECREASED [None]
